FAERS Safety Report 9628357 (Version 3)
Quarter: 2013Q4

REPORT INFORMATION
  Report Type: Report from Study
  Country: CO (occurrence: CO)
  Receive Date: 20131017
  Receipt Date: 20131201
  Transmission Date: 20140711
  Serious: Yes (Hospitalization, Other)
  Sender: FDA-Public Use
  Company Number: CO-ROCHE-1289894

PATIENT
  Age: 78 Year
  Sex: Female
  Weight: 40 kg

DRUGS (4)
  1. RANIBIZUMAB [Suspect]
     Indication: MACULAR DEGENERATION
     Route: 050
     Dates: start: 201309
  2. RANIBIZUMAB [Suspect]
     Dosage: IN RIGHT EYE
     Route: 050
  3. LOSARTAN [Concomitant]
  4. INSULIN [Concomitant]
     Dosage: 15 IU IN THE MORNING AND 10 IU AT NIGHT.
     Route: 065

REACTIONS (1)
  - Kidney infection [Recovered/Resolved]
